FAERS Safety Report 9675279 (Version 2)
Quarter: 2013Q4

REPORT INFORMATION
  Report Type: Spontaneous
  Country: US (occurrence: US)
  Receive Date: 20131107
  Receipt Date: 20131219
  Transmission Date: 20140711
  Serious: No
  Sender: FDA-Public Use
  Company Number: US-PFIZER INC-2013315320

PATIENT
  Age: 72 Year
  Sex: Female

DRUGS (6)
  1. SUTENT [Suspect]
     Dosage: 25 MG + 12.5 MG, 1X/DAY
     Route: 048
     Dates: start: 20130921, end: 20131104
  2. ATENOLOL [Concomitant]
     Dosage: UNK
  3. ARICEPT [Concomitant]
     Dosage: UNK
  4. REMERON [Concomitant]
     Dosage: UNK
  5. ASPIRIN [Concomitant]
     Dosage: UNK
  6. MULTIVIT [Concomitant]
     Dosage: UNK

REACTIONS (4)
  - Fatigue [Recovering/Resolving]
  - Weight decreased [Recovering/Resolving]
  - Blood creatinine increased [Recovering/Resolving]
  - Renal disorder [Not Recovered/Not Resolved]
